FAERS Safety Report 23167116 (Version 1)
Quarter: 2023Q4

REPORT INFORMATION
  Report Type: Spontaneous
  Country: US (occurrence: None)
  Receive Date: 20231109
  Receipt Date: 20231109
  Transmission Date: 20240109
  Serious: Yes (unspecified)
  Sender: FDA-Public Use
  Company Number: None

PATIENT
  Age: 69 Year
  Sex: Male
  Weight: 144 kg

DRUGS (41)
  1. ANDROGEL [Suspect]
     Active Substance: TESTOSTERONE
     Indication: Blood testosterone decreased
     Dates: start: 20131101
  2. ASPIRIN [Concomitant]
     Active Substance: ASPIRIN
  3. JR BITTAR [Concomitant]
  4. BUMETANIDE [Concomitant]
     Active Substance: BUMETANIDE
  5. CARVEDILOL [Concomitant]
     Active Substance: CARVEDILOL
  6. DILTIAZEM [Concomitant]
     Active Substance: DILTIAZEM
  7. JR WHITTAKER [Concomitant]
  8. FAMOTIDINE [Concomitant]
     Active Substance: FAMOTIDINE
  9. FENOFIBRATE [Concomitant]
     Active Substance: FENOFIBRATE
  10. LOSARTAN [Concomitant]
     Active Substance: LOSARTAN
  11. OMEPRAZOLE [Concomitant]
     Active Substance: OMEPRAZOLE
  12. JR RANI [Concomitant]
  13. METFORMIN HYDROCHLORIDE [Concomitant]
     Active Substance: METFORMIN HYDROCHLORIDE
  14. PRAVASTATIN [Concomitant]
     Active Substance: PRAVASTATIN
  15. VASCEPA [Concomitant]
     Active Substance: ICOSAPENT ETHYL
  16. MULTIVITAMIN [Concomitant]
  17. VITAMIN A [Concomitant]
     Active Substance: VITAMIN A
  18. ANY WHITTAKER [Concomitant]
  19. VITAMIN B12 [Concomitant]
     Active Substance: CYANOCOBALAMIN
  20. VITAMIN D [Concomitant]
     Active Substance: VITAMIN D NOS
  21. ANY CHALASANI [Concomitant]
  22. VITAMIN E [Concomitant]
     Active Substance: .ALPHA.-TOCOPHEROL
  23. ZETIA [Concomitant]
     Active Substance: EZETIMIBE
  24. KETOCONAZOLE [Concomitant]
     Active Substance: KETOCONAZOLE
  25. JR BLACK LUMIGAN DROPS [Concomitant]
  26. ANDROGEL [Concomitant]
     Active Substance: TESTOSTERONE
  27. OZEMPIC [Concomitant]
     Active Substance: SEMAGLUTIDE
  28. FIASP INSULIN [Concomitant]
  29. KONSYL POWDER [Concomitant]
  30. POLYETHYLENE GLYCOLS [Concomitant]
     Active Substance: POLYETHYLENE GLYCOLS
  31. CINNAMON POWDER [Concomitant]
  32. COMBIVENT RPT. INHALER [Concomitant]
  33. DME BI-PAP SET [Concomitant]
  34. DME PORTABLE OXYGEN [Concomitant]
  35. DME HOME CONCENTRATOR OXYGEN [Concomitant]
  36. BI-PAP [Concomitant]
  37. ALCOHOL PAD [Concomitant]
     Active Substance: ISOPROPYL ALCOHOL
  38. DME INSULIN INSET [Concomitant]
  39. DME DEXCON G6 SENSOR [Concomitant]
  40. DME DEXCOM G6 TRANSMITTER [Concomitant]
  41. AMLODIPINE [Concomitant]
     Active Substance: AMLODIPINE BESYLATE

REACTIONS (4)
  - Application site pain [None]
  - Muscular weakness [None]
  - Muscle tightness [None]
  - Trigger points [None]

NARRATIVE: CASE EVENT DATE: 20230901
